FAERS Safety Report 14511693 (Version 3)
Quarter: 2020Q3

REPORT INFORMATION
  Report Type: Report from Study
  Country: GB (occurrence: GB)
  Receive Date: 20180209
  Receipt Date: 20180427
  Transmission Date: 20201104
  Serious: Yes (Death, Hospitalization)
  Sender: FDA-Public Use
  Company Number: GB-ASTRAZENECA-2018SE13995

PATIENT
  Age: 24855 Day
  Sex: Female

DRUGS (18)
  1. DURVALUMAB. [Suspect]
     Active Substance: DURVALUMAB
     Indication: OESOPHAGEAL CARCINOMA
     Dosage: 1 ? INTERVAL: CYCLICAL
     Route: 042
     Dates: start: 20171202
  2. PARACETAMOL [Concomitant]
     Active Substance: ACETAMINOPHEN
     Route: 048
     Dates: start: 20170801
  3. DURVALUMAB. [Suspect]
     Active Substance: DURVALUMAB
     Indication: OESOPHAGEAL CARCINOMA
     Dosage: 1 ? INTERVAL: CYCLICAL
     Route: 042
     Dates: start: 20171012
  4. DURVALUMAB. [Suspect]
     Active Substance: DURVALUMAB
     Indication: OESOPHAGEAL CARCINOMA
     Dosage: 1 ? INTERVAL: CYCLICAL
     Route: 042
     Dates: start: 20180109
  5. DALTEPARIN [Concomitant]
     Active Substance: DALTEPARIN
     Dosage: 125000 IU
     Route: 058
     Dates: start: 20171106
  6. DURVALUMAB. [Suspect]
     Active Substance: DURVALUMAB
     Indication: OESOPHAGEAL CARCINOMA
     Dosage: 1 ? INTERVAL: CYCLICAL
     Route: 042
     Dates: start: 20171229
  7. XELODA [Suspect]
     Active Substance: CAPECITABINE
     Indication: OESOPHAGEAL CARCINOMA
     Dosage: 1 ? INTERVAL: DAY
     Route: 048
     Dates: start: 20171024, end: 20171204
  8. DURVALUMAB. [Suspect]
     Active Substance: DURVALUMAB
     Indication: OESOPHAGEAL CARCINOMA
     Dosage: 1 ? INTERVAL: CYCLICAL
     Route: 042
     Dates: start: 20171024
  9. ELOXATIN [Suspect]
     Active Substance: OXALIPLATIN
     Indication: OESOPHAGEAL CARCINOMA
     Dosage: 1? INTERVAL: CYCLICAL
     Route: 042
     Dates: start: 20171024, end: 20180102
  10. DURVALUMAB. [Suspect]
     Active Substance: DURVALUMAB
     Indication: OESOPHAGEAL CARCINOMA
     Dosage: 1 ? INTERVAL: CYCLICAL
     Route: 042
     Dates: start: 20170926
  11. METOCLOPRAMIDE. [Concomitant]
     Active Substance: METOCLOPRAMIDE
     Route: 048
     Dates: start: 20170629
  12. TREMELIMUMAB. [Suspect]
     Active Substance: TREMELIMUMAB
     Indication: OESOPHAGEAL CARCINOMA
     Dosage: 1 ? INTERVAL: CYCLICAL
     Route: 042
     Dates: start: 20170926, end: 20170926
  13. XELODA [Suspect]
     Active Substance: CAPECITABINE
     Indication: OESOPHAGEAL CARCINOMA
     Dosage: 1 ? INTERVAL: DAY
     Route: 048
     Dates: start: 20171212, end: 20180121
  14. ELOXATIN [Suspect]
     Active Substance: OXALIPLATIN
     Indication: OESOPHAGEAL CARCINOMA
     Dosage: 1? INTERVAL: CYCLICAL
     Route: 042
     Dates: start: 20171114
  15. ELOXATIN [Suspect]
     Active Substance: OXALIPLATIN
     Indication: OESOPHAGEAL CARCINOMA
     Dosage: 1? INTERVAL: CYCLICAL
     Route: 042
     Dates: start: 20171212
  16. ELOXATIN [Suspect]
     Active Substance: OXALIPLATIN
     Indication: OESOPHAGEAL CARCINOMA
     Dosage: 1? INTERVAL: CYCLICAL
     Route: 042
     Dates: end: 20180102
  17. DURVALUMAB. [Suspect]
     Active Substance: DURVALUMAB
     Indication: OESOPHAGEAL CARCINOMA
     Dosage: 1 ? INTERVAL: CYCLICAL
     Route: 042
     Dates: start: 20171121
  18. FLUOXETINE [Concomitant]
     Active Substance: FLUOXETINE HYDROCHLORIDE
     Route: 048
     Dates: start: 20171104

REACTIONS (2)
  - Encephalitis autoimmune [Not Recovered/Not Resolved]
  - Pneumonia [Fatal]

NARRATIVE: CASE EVENT DATE: 20180121
